FAERS Safety Report 7640243-7 (Version None)
Quarter: 2011Q3

REPORT INFORMATION
  Report Type: 
  Country: None (occurrence: None)
  Receive Date: 20110728
  Receipt Date: 20110720
  Transmission Date: 20111222
  Serious: Yes (Hospitalization, Other)
  Sender: FDA-Public Use
  Company Number: US-BAYER-2011-013702

PATIENT
  Age: 49 Year
  Sex: Female

DRUGS (4)
  1. BETASERON [Suspect]
     Dosage: 8 MIU, QOD
     Route: 058
     Dates: end: 20110702
  2. BETASERON [Suspect]
     Indication: RELAPSING-REMITTING MULTIPLE SCLEROSIS
     Dosage: UNK
     Route: 058
     Dates: start: 19990203, end: 20020101
  3. BETASERON [Suspect]
     Dosage: 2 MIU, QOD
     Route: 058
     Dates: start: 20110618
  4. BETASERON [Suspect]
     Dosage: BETAJECT 8 MIU, QOD
     Route: 058
     Dates: start: 20101111, end: 20110320

REACTIONS (16)
  - WEIGHT DECREASED [None]
  - INJECTION SITE ERYTHEMA [None]
  - ABASIA [None]
  - BLOOD PRESSURE DIASTOLIC INCREASED [None]
  - GASTROOESOPHAGEAL REFLUX DISEASE [None]
  - PROCEDURAL COMPLICATION [None]
  - POST PROCEDURAL HAEMORRHAGE [None]
  - IRRITABLE BOWEL SYNDROME [None]
  - TONGUE DISORDER [None]
  - BACK PAIN [None]
  - PNEUMONIA ASPIRATION [None]
  - HEADACHE [None]
  - PARAESTHESIA [None]
  - DIARRHOEA [None]
  - COUGH [None]
  - SPLENECTOMY [None]
